FAERS Safety Report 6371280-0 (Version None)
Quarter: 2009Q3

REPORT INFORMATION
  Report Type: 
  Country: None (occurrence: None)
  Receive Date: 20090918
  Receipt Date: 20090904
  Transmission Date: 20100115
  Serious: Yes (Life-Threatening)
  Sender: FDA-Public Use
  Company Number: 001152

PATIENT
  Sex: Female
  Weight: 75 kg

DRUGS (7)
  1. LACOSAMIDE [Suspect]
     Indication: EPILEPSY
     Dosage: (50 MG BID, THE INFUSION TIME WAS LONG OF 48 HOURS INTRAVENOUS (NOT OTHERWISE SPECIFIED))
     Route: 042
     Dates: start: 20090406, end: 20090410
  2. CEFTRIAXONE [Concomitant]
  3. LINEZOLID [Concomitant]
  4. RIFAMPICIN [Concomitant]
  5. METOPROLOL SUCCINATE [Concomitant]
  6. RIVOTRIL [Concomitant]
  7. LEVETIRACETAM [Concomitant]

REACTIONS (2)
  - CARDIAC ARREST [None]
  - CONVULSION [None]
